FAERS Safety Report 7861638-2 (Version None)
Quarter: 2011Q4

REPORT INFORMATION
  Report Type: 
  Country: None (occurrence: None)
  Receive Date: 20111027
  Receipt Date: 20111017
  Transmission Date: 20120403
  Serious: Yes (Disabling)
  Sender: FDA-Public Use
  Company Number: PHHY2011NO91332

PATIENT
  Sex: Female

DRUGS (1)
  1. DOXYCYCLINE [Suspect]
     Indication: SALPINGITIS
     Dosage: PROBABLY 200 MG FIRST DAY, THEN 100 MG A DAY
     Route: 048
     Dates: start: 19700528, end: 19700602

REACTIONS (2)
  - VESTIBULAR DISORDER [None]
  - VERTIGO [None]
